FAERS Safety Report 24605832 (Version 1)
Quarter: 2024Q4

REPORT INFORMATION
  Report Type: Spontaneous
  Country: CH (occurrence: CH)
  Receive Date: 20241111
  Receipt Date: 20241111
  Transmission Date: 20250115
  Serious: Yes (Hospitalization)
  Sender: ABBVIE
  Company Number: CH-ABBVIE-5988949

PATIENT
  Age: 31 Year
  Sex: Male

DRUGS (3)
  1. RINVOQ [Suspect]
     Active Substance: UPADACITINIB
     Indication: Dermatitis atopic
     Route: 048
     Dates: start: 202406, end: 20241005
  2. Clavulanate potassium/ Amoxicillin sodium (Co Amoxicillin) [Concomitant]
     Indication: Otitis media acute
     Dosage: TIME INTERVAL: 0.33333333 DAYS
     Dates: start: 20241010, end: 20241015
  3. Clavulanate potassium/ Amoxicillin sodium (Co Amoxicillin) [Concomitant]
     Indication: Otitis media acute
     Dates: start: 20240928, end: 20241005

REACTIONS (10)
  - Scab [Unknown]
  - Ophthalmic herpes simplex [Recovering/Resolving]
  - Rash [Not Recovered/Not Resolved]
  - Pseudomonas infection [Not Recovered/Not Resolved]
  - Staphylococcal infection [Recovered/Resolved]
  - Herpes simplex test positive [Unknown]
  - Staphylococcal infection [Not Recovered/Not Resolved]
  - Face oedema [Unknown]
  - Eczema herpeticum [Recovering/Resolving]
  - Pyrexia [Unknown]

NARRATIVE: CASE EVENT DATE: 20241001
